FAERS Safety Report 21791513 (Version 1)
Quarter: 2022Q4

REPORT INFORMATION
  Report Type: Spontaneous
  Country: GB (occurrence: GB)
  Receive Date: 20221228
  Receipt Date: 20221228
  Transmission Date: 20230113
  Serious: Yes (Other)
  Sender: FDA-Public Use
  Company Number: None

PATIENT
  Age: 10 Year
  Sex: Male

DRUGS (2)
  1. PREDNISOLONE [Suspect]
     Active Substance: PREDNISOLONE
     Indication: Duchenne muscular dystrophy
     Dosage: 0.8 MILLIGRAM/KILOGRAM/DAY (10 DAYS ON, 10 DAYS OFF)
     Route: 048
  2. DEFLAZACORT [Suspect]
     Active Substance: DEFLAZACORT
     Indication: Duchenne muscular dystrophy
     Dosage: 0.7 MILLIGRAM/KILOGRAM/DAY
     Route: 065

REACTIONS (3)
  - Spinal deformity [Unknown]
  - Spinal fracture [Unknown]
  - Osteoporosis [Unknown]
